FAERS Safety Report 5805285-2 (Version None)
Quarter: 2008Q3

REPORT INFORMATION
  Report Type: 
  Country: None (occurrence: None)
  Receive Date: 20080709
  Receipt Date: 20080630
  Transmission Date: 20090109
  Serious: Yes (Other)
  Sender: FDA-Public Use
  Company Number: BR-ALLERGAN-0807691US

PATIENT
  Age: 63 Year
  Sex: Male

DRUGS (5)
  1. ACULAR [Suspect]
     Indication: POSTOPERATIVE CARE
     Dosage: 1 GTT, TID
     Route: 047
     Dates: start: 20070101
  2. ACULAR [Suspect]
     Dosage: 1 GTT, TID
     Route: 047
     Dates: start: 20080601
  3. CILODEX [Concomitant]
     Indication: POSTOPERATIVE CARE
     Dosage: 1 GTT, TID
  4. ATROPINA [Concomitant]
     Indication: POSTOPERATIVE CARE
     Dosage: 1 GTT, BID
  5. ALPHAGAN [Concomitant]
     Indication: POSTOPERATIVE CARE
     Dosage: 1 GTT, TID
     Dates: end: 20080601

REACTIONS (6)
  - BLINDNESS UNILATERAL [None]
  - EYE HAEMORRHAGE [None]
  - EYE IRRITATION [None]
  - EYE PAIN [None]
  - OCULAR HYPERAEMIA [None]
  - POST PROCEDURAL COMPLICATION [None]
